FAERS Safety Report 13059654 (Version 1)
Quarter: 2016Q4

REPORT INFORMATION
  Report Type: Spontaneous
  Country: ES (occurrence: ES)
  Receive Date: 20161223
  Receipt Date: 20161223
  Transmission Date: 20170207
  Serious: Yes (Other)
  Sender: FDA-Public Use
  Company Number: ES-AMGEN-ESPSP2016178642

PATIENT
  Age: 71 Year
  Sex: Female

DRUGS (2)
  1. INSULIN [Concomitant]
     Active Substance: INSULIN NOS
  2. PROLIA [Suspect]
     Active Substance: DENOSUMAB
     Indication: OSTEOPOROSIS
     Dosage: 1 DF, Q6MO
     Route: 065

REACTIONS (9)
  - Foot fracture [Unknown]
  - Bone density abnormal [Unknown]
  - Blood iron decreased [Unknown]
  - Laboratory test abnormal [Unknown]
  - Alopecia [Unknown]
  - Paraesthesia [Unknown]
  - Jaw disorder [Unknown]
  - Body height decreased [Unknown]
  - Injection site haematoma [Unknown]

NARRATIVE: CASE EVENT DATE: 201512
